FAERS Safety Report 7408238-6 (Version None)
Quarter: 2011Q2

REPORT INFORMATION
  Report Type: 
  Country: None (occurrence: None)
  Receive Date: 20110408
  Receipt Date: 20110408
  Transmission Date: 20111010
  Serious: Yes (Other)
  Sender: FDA-Public Use
  Company Number: None

PATIENT
  Age: 41 Year
  Sex: Female
  Weight: 51.7101 kg

DRUGS (1)
  1. SYNTHROID [Suspect]
     Indication: HYPOTHYROIDISM
     Dates: start: 20101101, end: 20110201

REACTIONS (4)
  - EPICONDYLITIS [None]
  - PERIARTHRITIS [None]
  - LIGAMENT RUPTURE [None]
  - ARTHRALGIA [None]
